FAERS Safety Report 6410531-0 (Version None)
Quarter: 2009Q4

REPORT INFORMATION
  Report Type: 
  Country: None (occurrence: None)
  Receive Date: 20091020
  Receipt Date: 20091020
  Transmission Date: 20100525
  Serious: Yes (Disabling)
  Sender: FDA-Public Use
  Company Number: None

PATIENT
  Age: 6 Year
  Sex: Male
  Weight: 24.9478 kg

DRUGS (1)
  1. ZYRTEC [Suspect]
     Indication: SEASONAL ALLERGY
     Dosage: 1TSP 1 TIME A DAY
     Dates: start: 20090815, end: 20091001

REACTIONS (7)
  - AGGRESSION [None]
  - HEART RATE INCREASED [None]
  - IRRITABILITY [None]
  - MOOD SWINGS [None]
  - NIGHTMARE [None]
  - PALPITATIONS [None]
  - PERSONALITY CHANGE [None]
